FAERS Safety Report 7164583-3 (Version None)
Quarter: 2010Q4

REPORT INFORMATION
  Report Type: 
  Country: None (occurrence: None)
  Receive Date: 20101215
  Receipt Date: 20101203
  Transmission Date: 20110411
  Serious: Yes (Other)
  Sender: FDA-Public Use
  Company Number: US-SANOFI-AVENTIS-2010SA074434

PATIENT
  Age: 89 Year
  Sex: Female

DRUGS (1)
  1. CLOPIDOGREL BISULFATE [Suspect]
     Indication: ACUTE CORONARY SYNDROME
     Route: 065
     Dates: start: 20101118

REACTIONS (4)
  - ABDOMINAL DISCOMFORT [None]
  - EMOTIONAL DISTRESS [None]
  - PRESYNCOPE [None]
  - UNRESPONSIVE TO STIMULI [None]
